FAERS Safety Report 7386275-8 (Version None)
Quarter: 2011Q1

REPORT INFORMATION
  Report Type: 
  Country: None (occurrence: None)
  Receive Date: 20110329
  Receipt Date: 20110329
  Transmission Date: 20110831
  Serious: Yes (Death, Hospitalization, Other)
  Sender: FDA-Public Use
  Company Number: None

PATIENT
  Age: 31 Year
  Sex: Female
  Weight: 54.4316 kg

DRUGS (4)
  1. ASCECOL [Concomitant]
  2. MULTIVITAMIN -DAILY- [Concomitant]
  3. IRON TABLETS [Concomitant]
  4. AZATHIOPRINE [Suspect]
     Indication: COLITIS ULCERATIVE
     Dosage: 50 MG. TWICE A DAY PO
     Route: 048
     Dates: start: 20100813, end: 20110113

REACTIONS (4)
  - WHITE BLOOD CELL COUNT DECREASED [None]
  - PRURITUS [None]
  - ANAEMIA [None]
  - PYREXIA [None]
